FAERS Safety Report 22357738 (Version 1)
Quarter: 2023Q2

REPORT INFORMATION
  Report Type: Spontaneous
  Country: US (occurrence: None)
  Receive Date: 20230524
  Receipt Date: 20230524
  Transmission Date: 20230722
  Serious: Yes (Death)
  Sender: FDA-Public Use
  Company Number: US-ROCHE-3355168

PATIENT
  Sex: Male

DRUGS (1)
  1. RITUXAN [Suspect]
     Active Substance: RITUXIMAB
     Indication: Rheumatoid arthritis
     Dosage: INFUSE 1000 MG INTRAVENOUSLY AT WEEKS 0 AND 2. EVERY 6 MONTHS, STRENGTH 10 MG/ML
     Route: 042
     Dates: start: 202104

REACTIONS (1)
  - Death [Fatal]
